FAERS Safety Report 19891839 (Version 1)
Quarter: 2021Q3

REPORT INFORMATION
  Report Type: Report from Study
  Country: AU (occurrence: AU)
  Receive Date: 20210928
  Receipt Date: 20210928
  Transmission Date: 20211014
  Serious: Yes (Death)
  Sender: FDA-Public Use
  Company Number: AU-KARYOPHARM-2021KPT001099

PATIENT
  Age: 41 Year
  Sex: Male

DRUGS (3)
  1. DARATUMUMAB [Concomitant]
     Active Substance: DARATUMUMAB
  2. SELINEXOR [Suspect]
     Active Substance: SELINEXOR
     Indication: PLASMA CELL MYELOMA
     Dosage: 80 MG, 2X/WEEK ON DAY 1 AND 3
     Route: 048
     Dates: start: 20210714
  3. DEXAMETHASONE. [Concomitant]
     Active Substance: DEXAMETHASONE
     Indication: PLASMA CELL MYELOMA
     Dosage: 20 MG, 2X/WEEK ON DAY 1 AND 3
     Dates: start: 20210714

REACTIONS (2)
  - Plasma cell myeloma [Fatal]
  - Nausea [Unknown]

NARRATIVE: CASE EVENT DATE: 2021
